FAERS Safety Report 20486551 (Version 1)
Quarter: 2022Q1

REPORT INFORMATION
  Report Type: Report from Study
  Country: DE (occurrence: DE)
  Receive Date: 20220217
  Receipt Date: 20220217
  Transmission Date: 20220423
  Serious: Yes (Other)
  Sender: FDA-Public Use
  Company Number: DE-ABBVIE-22K-062-4248518-00

PATIENT
  Sex: Male
  Weight: 111 kg

DRUGS (13)
  1. CARBIDOPA\LEVODOPA [Suspect]
     Active Substance: CARBIDOPA\LEVODOPA
     Indication: Parkinson^s disease
     Dosage: MD 3,0ML CRD 4,9ML/H CRN 2,2ML/H ED 2,0ML
     Route: 050
     Dates: start: 20220118, end: 202201
  2. CARBIDOPA\LEVODOPA [Suspect]
     Active Substance: CARBIDOPA\LEVODOPA
     Dosage: MD 3.0ML CRD 4.7 ML/H CRN 2.2ML/H ED AS REQUIRED
     Route: 050
     Dates: start: 202201
  3. RIVAROXABAN [Concomitant]
     Active Substance: RIVAROXABAN
     Indication: Deep vein thrombosis
  4. BISOPROLOL [Concomitant]
     Active Substance: BISOPROLOL
     Indication: Product used for unknown indication
  5. TORSEMIDE [Concomitant]
     Active Substance: TORSEMIDE
     Indication: Product used for unknown indication
  6. AMANTADINE [Concomitant]
     Active Substance: AMANTADINE
     Indication: Product used for unknown indication
  7. MIRTAZAPINE [Concomitant]
     Active Substance: MIRTAZAPINE
     Indication: Product used for unknown indication
     Dosage: 0-0-0-1.5
  8. QUETIAPINE [Concomitant]
     Active Substance: QUETIAPINE
     Indication: Product used for unknown indication
     Dosage: 0-0-0.5-1
  9. TAMSULOSIN [Concomitant]
     Active Substance: TAMSULOSIN
     Indication: Product used for unknown indication
  10. CARBIDOPA\LEVODOPA [Concomitant]
     Active Substance: CARBIDOPA\LEVODOPA
     Indication: Product used for unknown indication
     Dosage: 100/25 MG, 1 TABLET 30 MINUTES BEFORE EATING OR 2.5 HOURS AFTER EATING
  11. PREDNITOP [Concomitant]
     Indication: Drug hypersensitivity
     Dosage: TILL HEALING
  12. PREDNITOP [Concomitant]
     Indication: Intertrigo
  13. XARELTO [Concomitant]
     Active Substance: RIVAROXABAN
     Indication: Anticoagulant therapy
     Dates: end: 202201

REACTIONS (24)
  - Inguinal hernia repair [Unknown]
  - Urosepsis [Unknown]
  - Pneumonia aspiration [Not Recovered/Not Resolved]
  - C-reactive protein increased [Not Recovered/Not Resolved]
  - Body temperature increased [Not Recovered/Not Resolved]
  - General physical health deterioration [Unknown]
  - Therapeutic product effect variable [Unknown]
  - Pain [Unknown]
  - Inflammation [Unknown]
  - Gait disturbance [Unknown]
  - Skin infection [Unknown]
  - Fall [Unknown]
  - Muscular weakness [Unknown]
  - Motor dysfunction [Unknown]
  - Hyperkinesia [Unknown]
  - Dystonia [Unknown]
  - Choking [Unknown]
  - Mobility decreased [Unknown]
  - Kyphosis [Unknown]
  - Pyrexia [Unknown]
  - Cognitive disorder [Unknown]
  - Cardiac failure [Unknown]
  - Bladder hypertrophy [Unknown]
  - Urinary tract infection [Unknown]

NARRATIVE: CASE EVENT DATE: 20220101
